FAERS Safety Report 5669758-8 (Version None)
Quarter: 2008Q1

REPORT INFORMATION
  Report Type: 
  Country: None (occurrence: None)
  Receive Date: 20080313
  Receipt Date: 20080313
  Transmission Date: 20080703
  Serious: Yes (Hospitalization)
  Sender: FDA-Public Use
  Company Number: None

PATIENT
  Age: 32 Year
  Sex: Female
  Weight: 54.8852 kg

DRUGS (10)
  1. NATALIZUMAB, 300MG, ELAN [Suspect]
     Indication: MULTIPLE SCLEROSIS
     Dosage: 300 MG MONTHLY IV
     Route: 042
     Dates: start: 20070910
  2. NATALIZUMAB, 300MG, ELAN [Suspect]
     Indication: MULTIPLE SCLEROSIS
     Dosage: 300 MG MONTHLY IV
     Route: 042
     Dates: start: 20071010
  3. ACETAMINOPHEN W/ CODEINE [Concomitant]
  4. DOCUSATE [Concomitant]
  5. MECLIZINE [Concomitant]
  6. MEPERIDINE HCL [Concomitant]
  7. NAPROXEN [Concomitant]
  8. POTASSIUM CHLORIDE [Concomitant]
  9. PROMETHAZINE [Concomitant]
  10. MIRTAZAPINE [Concomitant]

REACTIONS (5)
  - ANXIETY [None]
  - ERYTHEMA [None]
  - FEELING HOT [None]
  - INFUSION RELATED REACTION [None]
  - TACHYCARDIA [None]
